FAERS Safety Report 15394420 (Version 1)
Quarter: 2018Q4

REPORT INFORMATION
  Report Type: Spontaneous
  Country: ES (occurrence: ES)
  Receive Date: 20180918
  Receipt Date: 20180918
  Transmission Date: 20190204
  Serious: Yes (Other)
  Sender: FDA-Public Use
  Company Number: ES-TEVA-2018-ES-955551

PATIENT
  Age: 26 Year
  Sex: Female
  Weight: 70 kg

DRUGS (11)
  1. ACTITHIOL MUCOLITICO ANTIHISTAM?NICO SOLUCI?N ORAL , 1 FRASCO DE 200 M [Concomitant]
     Route: 065
  2. MOXIFLOXACINO TEVA 400 MG COMPRIMIDOS RECUBIERTOS CON PELICULA EFG, 7 [Suspect]
     Active Substance: MOXIFLOXACIN HYDROCHLORIDE
     Indication: SINUS HEADACHE
     Dosage: 400 MILLIGRAM DAILY; 1 TABLET PER DAY
     Route: 048
     Dates: start: 20180821
  3. FLUCONAZOL (2432A) [Concomitant]
     Active Substance: FLUCONAZOLE
     Dosage: 1 TABLET
     Route: 065
  4. NOLOTIL 575 MG CAPSULAS DURAS, 20 C?PSULAS [Concomitant]
     Active Substance: METAMIZOLE MAGNESIUM
     Route: 065
  5. AVAMYS  27,5 MCG/PULVERIZACION PARA SUSPENSION NASAL, 1 FRASCO DE 120 [Concomitant]
     Route: 065
  6. FLUIDASA 5 MG/ML SOLUCION ORAL, 1 FRASCO DE 250 ML [Concomitant]
  7. AMOXICILINA (108A) [Concomitant]
     Active Substance: AMOXICILLIN
     Indication: BRONCHITIS
     Dosage: 3 TABLETS PER DAY FOR ONE WEEK
     Route: 065
     Dates: start: 20180723, end: 20180730
  8. ALPRAZOLAM ALTER 0,50 MG COMPRIMIDOS EFG , 30 COMPRIMIDOS [Concomitant]
     Active Substance: ALPRAZOLAM
     Route: 065
  9. VENTOLIN 100 MICROGRAMOS/INHALACI?N SUSPENSI?N PARA INHALACI?N EN ENVA [Concomitant]
     Route: 065
  10. LAURIMIC 20 MG/G CREMA , 1 TUBO DE 30 G [Concomitant]
     Route: 065
  11. LAURIMIC 600 MG OVULOS , 1 ?VULO [Concomitant]

REACTIONS (2)
  - Menstruation delayed [Recovered/Resolved]
  - Depression [Recovering/Resolving]

NARRATIVE: CASE EVENT DATE: 20180821
